FAERS Safety Report 19256942 (Version 2)
Quarter: 2021Q2

REPORT INFORMATION
  Report Type: Spontaneous
  Country: US (occurrence: US)
  Receive Date: 20210513
  Receipt Date: 20210608
  Transmission Date: 20210717
  Serious: Yes (Hospitalization, Other)
  Sender: FDA-Public Use
  Company Number: US-PFIZER INC-2021487430

PATIENT
  Age: 33 Year
  Sex: Female
  Weight: 80.73 kg

DRUGS (4)
  1. LIDOCAINE HCL [Suspect]
     Active Substance: LIDOCAINE HYDROCHLORIDE
     Indication: POSTERIOR TIBIAL NERVE INJURY
     Dosage: 1 ML
     Dates: start: 20210412
  2. DEXTROSE 5% [Concomitant]
     Active Substance: DEXTROSE
     Dosage: UNK
     Dates: start: 20210412, end: 20210412
  3. LIDOCAINE HCL [Suspect]
     Active Substance: LIDOCAINE HYDROCHLORIDE
     Indication: BURSITIS
  4. LIDOCAINE HCL [Suspect]
     Active Substance: LIDOCAINE HYDROCHLORIDE
     Indication: ARTHRALGIA

REACTIONS (5)
  - Swelling [Recovered/Resolved]
  - Muscle spasms [Recovered/Resolved]
  - Compartment syndrome [Unknown]
  - Weight bearing difficulty [Recovered/Resolved]
  - Pain [Recovered/Resolved]

NARRATIVE: CASE EVENT DATE: 20210412
